FAERS Safety Report 6039696-X (Version None)
Quarter: 2009Q1

REPORT INFORMATION
  Report Type: 
  Country: None (occurrence: None)
  Receive Date: 20090116
  Receipt Date: 20080520
  Transmission Date: 20090719
  Serious: No
  Sender: FDA-Public Use
  Company Number: US-KINGPHARMUSA00001-K200800584

PATIENT
  Sex: Female

DRUGS (4)
  1. CORGARD [Suspect]
     Indication: ARRHYTHMIA
     Dosage: 20 MG, QD
     Route: 048
     Dates: start: 20070101, end: 20070101
  2. CORGARD [Suspect]
     Dosage: 10 MG, UNK
     Route: 048
     Dates: start: 20070101
  3. CORGARD [Suspect]
     Dosage: 10 MG, UNK
     Route: 048
     Dates: start: 20080520
  4. PREVACID [Concomitant]
     Indication: REFLUX OESOPHAGITIS
     Dosage: UNK, UNK
     Route: 048

REACTIONS (3)
  - BLOOD PRESSURE DECREASED [None]
  - FEELING ABNORMAL [None]
  - HEART RATE INCREASED [None]
